FAERS Safety Report 23784978 (Version 1)
Quarter: 2024Q2

REPORT INFORMATION
  Report Type: Spontaneous
  Country: US (occurrence: None)
  Receive Date: 20240425
  Receipt Date: 20240425
  Transmission Date: 20240715
  Serious: No
  Sender: FDA-Public Use
  Company Number: None

PATIENT
  Sex: Female

DRUGS (6)
  1. OPSUMIT [Suspect]
     Active Substance: MACITENTAN
     Indication: Pulmonary arterial hypertension
     Dosage: FREQUENCY : DAILY;?
     Route: 048
     Dates: start: 201710
  2. TRIAMCINOLONE ACET CRM [Concomitant]
  3. MYCOPHENOLATE MOFETIL [Concomitant]
  4. C-TREPROSTINIL RM [Concomitant]
  5. ADEMPAS [Concomitant]
  6. ORENITRAM ER [Concomitant]

REACTIONS (5)
  - Fluid retention [None]
  - Dyspnoea [None]
  - Abdominal distension [None]
  - Therapy cessation [None]
  - Therapy change [None]
